FAERS Safety Report 12799694 (Version 1)
Quarter: 2016Q3

REPORT INFORMATION
  Report Type: Report from Study
  Country: KR (occurrence: KR)
  Receive Date: 20160930
  Receipt Date: 20160930
  Transmission Date: 20161109
  Serious: Yes (Hospitalization)
  Sender: FDA-Public Use
  Company Number: KR-PFIZER INC-2014108260

PATIENT
  Age: 37 Year
  Sex: Male

DRUGS (19)
  1. ADVAGRAF [Suspect]
     Active Substance: TACROLIMUS
     Indication: IMMUNOSUPPRESSION
     Dosage: 5 TO 13 MG DAILY DOSE
     Route: 048
     Dates: start: 20130103, end: 20130603
  2. ADALAT [Concomitant]
     Active Substance: NIFEDIPINE
     Dosage: 30 MG, 1X/DAY
     Route: 048
  3. DILATREND [Concomitant]
     Active Substance: CARVEDILOL
     Dosage: 25 MG DAILY DOSE, 2X/DAY
     Route: 048
  4. LAMINA-G [Concomitant]
     Dosage: 60 ML DAILY DOSE, 3X/DAY
     Route: 048
  5. NYSTATIN. [Concomitant]
     Active Substance: NYSTATIN
     Dosage: 1 MG DAILY DOSE, 4X/DAY
     Route: 048
  6. NORVASC [Concomitant]
     Active Substance: AMLODIPINE BESYLATE
     Dosage: 10 MG, 1X/DAY
     Route: 048
  7. RAPAMUNE [Suspect]
     Active Substance: SIROLIMUS
     Indication: IMMUNOSUPPRESSION
     Dosage: 1 TO 2 MG DAILY DOSE
     Route: 048
     Dates: start: 20130104, end: 20130821
  8. LAMINA-G [Concomitant]
     Dosage: 150 MG DAILY DOSE, 3X/DAY
     Route: 048
  9. RAPAMUNE [Suspect]
     Active Substance: SIROLIMUS
     Dosage: 1 MG DAILY DOSE, ALTERNATE DAY (QOD)
     Route: 048
     Dates: start: 20130822
  10. PANTOPRAZOLE SODIUM. [Concomitant]
     Active Substance: PANTOPRAZOLE SODIUM
     Dosage: 40 MG, 1X/DAY
     Route: 042
  11. NYSTATIN. [Concomitant]
     Active Substance: NYSTATIN
     Dosage: 20 MG DAILY DOSE, 4X/DAY
     Route: 048
  12. SOLONDO [Concomitant]
     Active Substance: PREDNISOLONE
     Dosage: 5 MG, 1X/DAY
     Route: 048
  13. ADVAGRAF [Suspect]
     Active Substance: TACROLIMUS
     Dosage: 8 MG, DAILY DOSE
     Route: 048
     Dates: start: 20130604, end: 20131118
  14. ADVAGRAF [Suspect]
     Active Substance: TACROLIMUS
     Dosage: 7 MG, DAILY DOSE
     Route: 048
     Dates: start: 20131119
  15. HERBEN [Concomitant]
     Dosage: 30 MG, 1X/DAY
     Route: 048
  16. LIPITOR [Concomitant]
     Active Substance: ATORVASTATIN CALCIUM
     Dosage: 10 MG, 1X/DAY
     Route: 048
  17. NISOLONE [Concomitant]
     Dosage: 10 MG DAILY DOSE, 2X/DAY
     Route: 048
  18. NORVASC [Concomitant]
     Active Substance: AMLODIPINE BESYLATE
     Dosage: 20 MG, 1X/DAY
     Route: 048
  19. SOLONDO [Concomitant]
     Active Substance: PREDNISOLONE
     Dosage: 10 MG, 1X/DAY
     Route: 048

REACTIONS (4)
  - Pyrexia [Recovered/Resolved]
  - Hydronephrosis [Recovered/Resolved]
  - Ileus paralytic [Recovered/Resolved]
  - Osteonecrosis [Recovered/Resolved]

NARRATIVE: CASE EVENT DATE: 20130209
